FAERS Safety Report 6467246-2 (Version None)
Quarter: 2009Q4

REPORT INFORMATION
  Report Type: 
  Country: None (occurrence: None)
  Receive Date: 20091130
  Receipt Date: 20091116
  Transmission Date: 20100525
  Serious: Yes (Hospitalization)
  Sender: FDA-Public Use
  Company Number: 2009US004102

PATIENT
  Age: 8 Year
  Sex: Female
  Weight: 32 kg

DRUGS (3)
  1. AMBISOME [Suspect]
     Indication: DRUG USE FOR UNKNOWN INDICATION
  2. METHOTREXATE [Concomitant]
     Indication: DRUG USE FOR UNKNOWN INDICATION
  3. UNSPECIFIED STUDY DRUG (ST1571) (UNSPECIFIED STUDY DRUG (ST1571)) [Suspect]
     Indication: ACUTE LYMPHOCYTIC LEUKAEMIA
     Dosage: ORAL
     Route: 048
     Dates: start: 20050419

REACTIONS (4)
  - FEBRILE NEUTROPENIA [None]
  - HYPERKALAEMIA [None]
  - HYPOKALAEMIA [None]
  - PNEUMOCYSTIS JIROVECI INFECTION [None]
